FAERS Safety Report 25954730 (Version 1)
Quarter: 2025Q4

REPORT INFORMATION
  Report Type: Spontaneous
  Country: EU (occurrence: EU)
  Receive Date: 20251024
  Receipt Date: 20251024
  Transmission Date: 20260118
  Serious: Yes (Death, Hospitalization, Other)
  Sender: UNITED THERAPEUTICS
  Company Number: EU-UNITED THERAPEUTICS-UNT-2025-035923

PATIENT
  Age: 47 Year

DRUGS (9)
  1. REMODULIN [Suspect]
     Active Substance: TREPROSTINIL
     Indication: Heritable pulmonary arterial hypertension
     Dosage: 0.062 ?G/KG, CONTINUING
  2. REMODULIN [Suspect]
     Active Substance: TREPROSTINIL
     Dosage: UNK, CONTINUING
  3. TADALAFIL [Concomitant]
     Active Substance: TADALAFIL
     Indication: Heritable pulmonary arterial hypertension
     Dosage: 40 MG
  4. AMBRISENTAN [Concomitant]
     Active Substance: AMBRISENTAN
     Indication: Heritable pulmonary arterial hypertension
     Dosage: 10 MG
  5. SOTATERCEPT [Concomitant]
     Active Substance: SOTATERCEPT
     Indication: Heritable pulmonary arterial hypertension
     Dosage: UNK
  6. Oxaliplatin;Raltitrexed [Concomitant]
     Indication: Colorectal cancer metastatic
     Dosage: UNK (CYCLE 1)
  7. Oxaliplatin;Raltitrexed [Concomitant]
     Indication: Metastases to liver
     Dosage: UNK (CYCLE 2)
  8. Oxaliplatin;Raltitrexed [Concomitant]
     Indication: Metastases to lung
     Dosage: UNK (CYCLE 3)
  9. Oxaliplatin;Raltitrexed [Concomitant]
     Dosage: UNK (CYCLE 4)

REACTIONS (7)
  - Death [Fatal]
  - Cardiac failure congestive [Unknown]
  - Colorectal cancer metastatic [Unknown]
  - Metastases to liver [Unknown]
  - Metastases to lung [Unknown]
  - Atrial flutter [Recovered/Resolved]
  - Iron deficiency anaemia [Unknown]
